FAERS Safety Report 21304883 (Version 1)
Quarter: 2022Q3

REPORT INFORMATION
  Report Type: Spontaneous
  Country: ES (occurrence: ES)
  Receive Date: 20220907
  Receipt Date: 20220907
  Transmission Date: 20221027
  Serious: Yes (Death, Other)
  Sender: FDA-Public Use
  Company Number: ES-SEATTLE GENETICS-2022SGN08348

PATIENT

DRUGS (1)
  1. ADCETRIS [Suspect]
     Active Substance: BRENTUXIMAB VEDOTIN
     Indication: T-cell lymphoma
     Dosage: 1.8 MG/KG, Q3WEEKS
     Route: 042

REACTIONS (1)
  - Sepsis [Fatal]
